FAERS Safety Report 5780113-2 (Version None)
Quarter: 2008Q2

REPORT INFORMATION
  Report Type: 
  Country: None (occurrence: None)
  Receive Date: 20080620
  Receipt Date: 20080609
  Transmission Date: 20081010
  Serious: Yes (Hospitalization)
  Sender: FDA-Public Use
  Company Number: US-AMGEN-QUU283329

PATIENT
  Sex: Male

DRUGS (4)
  1. ENBREL [Suspect]
     Indication: PSORIASIS
     Route: 058
     Dates: start: 20070601, end: 20071128
  2. PREDNISONE TAB [Concomitant]
     Dates: start: 20080502
  3. MELOXICAM [Concomitant]
     Dates: start: 20080501, end: 20080509
  4. METHOCARBAMOL [Concomitant]
     Dates: start: 20080501, end: 20080502

REACTIONS (5)
  - COMA [None]
  - GERM CELL CANCER [None]
  - METASTATIC NEOPLASM [None]
  - PNEUMONIA [None]
  - PSORIASIS [None]
